FAERS Safety Report 5541804-1 (Version None)
Quarter: 2007Q4

REPORT INFORMATION
  Report Type: 
  Country: None (occurrence: None)
  Receive Date: 20071129
  Receipt Date: 20070523
  Transmission Date: 20080405
  Serious: Yes (Other)
  Sender: FDA-Public Use
  Company Number: US200705005928

PATIENT
  Age: 22 Year
  Sex: Male
  Weight: 52.2 kg

DRUGS (3)
  1. ZYPREXA [Suspect]
     Indication: SCHIZOPHRENIA, PARANOID TYPE
     Dosage: 15 MG, 2/D, ORAL
     Route: 048
     Dates: start: 20061101
  2. DEPAKOTE [Concomitant]
  3. ALPRAZOLAM [Concomitant]

REACTIONS (4)
  - HALLUCINATION [None]
  - OVERDOSE [None]
  - SOCIAL AVOIDANT BEHAVIOUR [None]
  - WEIGHT INCREASED [None]
